FAERS Safety Report 4387718-4 (Version None)
Quarter: 2004Q2

REPORT INFORMATION
  Report Type: 
  Country: None (occurrence: None)
  Receive Date: 20040630
  Receipt Date: 20030910
  Transmission Date: 20050107
  Serious: Yes (Hospitalization, Disabling)
  Sender: FDA-Public Use
  Company Number: US-MERCK-0309USA01730

PATIENT
  Age: 51 Year
  Sex: Male
  Weight: 100 kg

DRUGS (18)
  1. LIPITOR [Concomitant]
     Route: 065
     Dates: start: 19940101, end: 20020808
  2. LOTENSIN [Concomitant]
     Indication: HYPERTENSION
     Route: 065
     Dates: start: 20000101, end: 20030808
  3. LOTENSIN [Concomitant]
     Indication: DIABETES MELLITUS
     Route: 065
     Dates: start: 20000101, end: 20030808
  4. VASOTEC [Concomitant]
     Indication: HYPERTENSION
     Route: 048
     Dates: start: 19940101, end: 20030808
  5. VASOTEC [Concomitant]
     Indication: DIABETES MELLITUS
     Route: 048
     Dates: start: 19940101, end: 20030808
  6. PROZAC [Concomitant]
     Indication: DEPRESSION
     Route: 065
     Dates: start: 20000101, end: 20020801
  7. PROZAC [Concomitant]
     Indication: CHRONIC FATIGUE SYNDROME
     Route: 065
     Dates: start: 20000101, end: 20020801
  8. PROZAC [Concomitant]
     Route: 065
  9. GINSENG [Concomitant]
     Route: 065
     Dates: start: 20000101, end: 20010101
  10. NAPROXEN [Concomitant]
     Route: 065
     Dates: start: 20000101, end: 20030101
  11. ACCUPRIL [Concomitant]
     Indication: HYPERTENSION
     Route: 065
     Dates: start: 20000101, end: 20030808
  12. ACCUPRIL [Concomitant]
     Indication: DIABETES MELLITUS
     Route: 065
     Dates: start: 20000101, end: 20030808
  13. VIOXX [Suspect]
     Indication: BACK PAIN
     Route: 048
     Dates: start: 20000101, end: 20010101
  14. VIOXX [Suspect]
     Route: 048
  15. VIOXX [Suspect]
     Route: 048
  16. VIOXX [Suspect]
     Indication: FIBROMYALGIA
     Route: 048
     Dates: start: 20000101, end: 20010101
  17. VIOXX [Suspect]
     Route: 048
  18. VIOXX [Suspect]
     Route: 048

REACTIONS (13)
  - ABDOMINAL PAIN LOWER [None]
  - ACIDOSIS [None]
  - ACUTE MYOCARDIAL INFARCTION [None]
  - CHILLS [None]
  - CORONARY ARTERY DISEASE [None]
  - COUGH [None]
  - DIVERTICULUM [None]
  - FLANK PAIN [None]
  - GASTRITIS [None]
  - HAEMORRHOIDS [None]
  - HIATUS HERNIA [None]
  - HYPERHIDROSIS [None]
  - RHINORRHOEA [None]
